FAERS Safety Report 23226834 (Version 5)
Quarter: 2025Q1

REPORT INFORMATION
  Report Type: Spontaneous
  Country: US (occurrence: US)
  Receive Date: 20231124
  Receipt Date: 20250304
  Transmission Date: 20250409
  Serious: Yes (Death, Life-Threatening, Other)
  Sender: JOHNSON AND JOHNSON
  Company Number: US-JNJFOC-20231138995

PATIENT
  Age: 55 Year
  Sex: Female

DRUGS (1)
  1. CARVYKTI [Suspect]
     Active Substance: CILTACABTAGENE AUTOLEUCEL
     Indication: Plasma cell myeloma refractory
     Route: 041
     Dates: start: 20230831, end: 20230831

REACTIONS (5)
  - Sepsis [Fatal]
  - Large intestine perforation [Unknown]
  - Facial paralysis [Recovering/Resolving]
  - Colitis [Unknown]
  - Duodenitis [Unknown]

NARRATIVE: CASE EVENT DATE: 20230101
